FAERS Safety Report 13703153 (Version 1)
Quarter: 2017Q2

REPORT INFORMATION
  Report Type: Spontaneous
  Country: FR (occurrence: FR)
  Receive Date: 20170629
  Receipt Date: 20170629
  Transmission Date: 20170830
  Serious: Yes (Hospitalization, Other)
  Sender: FDA-Public Use
  Company Number: FR-PFIZER INC-2017278265

PATIENT
  Age: 71 Year
  Sex: Male

DRUGS (7)
  1. STROMECTOL [Suspect]
     Active Substance: IVERMECTIN
     Dosage: 18 MG, SINGLE
     Route: 048
     Dates: start: 20170602, end: 20170602
  2. ZAVEDOS [Suspect]
     Active Substance: IDARUBICIN
     Indication: ACUTE LEUKAEMIA
     Dosage: 14 MG, 1X/DAY
     Route: 042
     Dates: start: 20170523, end: 20170528
  3. CYTARABINE EBEWE [Suspect]
     Active Substance: CYTARABINE
     Indication: ACUTE LEUKAEMIA
     Dosage: 175 MG, 1X/DAY
     Route: 042
     Dates: start: 20170524, end: 20170529
  4. VANCOMYCINE SANDOZ [Suspect]
     Active Substance: VANCOMYCIN
     Indication: VASCULAR ACCESS SITE INFECTION
     Dosage: 2.5 G, 1X/DAY
     Route: 042
     Dates: start: 20170530, end: 20170606
  5. BACTRIM [Suspect]
     Active Substance: SULFAMETHOXAZOLE\TRIMETHOPRIM
     Indication: PROPHYLAXIS
     Dosage: 3 DF WEEKLY (1 TABLET THREE TIMES A WEEK)
     Route: 048
     Dates: start: 20170519, end: 20170615
  6. CEFEPIME [Suspect]
     Active Substance: CEFEPIME HYDROCHLORIDE
     Indication: VASCULAR ACCESS SITE INFECTION
     Dosage: 6 G, 1X/DAY
     Route: 042
     Dates: start: 20170526, end: 20170607
  7. STROMECTOL [Suspect]
     Active Substance: IVERMECTIN
     Indication: PROPHYLAXIS
     Dosage: 18 MG, SINGLE
     Route: 048
     Dates: start: 20170520, end: 20170520

REACTIONS (4)
  - Acute kidney injury [Unknown]
  - Acute pulmonary oedema [Unknown]
  - Rash maculo-papular [Recovering/Resolving]
  - Renal disorder [Unknown]

NARRATIVE: CASE EVENT DATE: 20170609
